FAERS Safety Report 18575006 (Version 1)
Quarter: 2020Q4

REPORT INFORMATION
  Report Type: Spontaneous
  Country: AR (occurrence: AR)
  Receive Date: 20201203
  Receipt Date: 20201203
  Transmission Date: 20210114
  Serious: Yes (Other)
  Sender: FDA-Public Use
  Company Number: AR-PFIZER INC-2020470793

PATIENT
  Age: 6 Year
  Sex: Female

DRUGS (1)
  1. GENOTROPIN [Suspect]
     Active Substance: SOMATROPIN
     Dosage: 0.1- 0.5 MG, WEEKLY (7 DOSES PER WEEK)
     Dates: start: 20160422

REACTIONS (2)
  - Tonsillar disorder [Unknown]
  - Adenoidal disorder [Unknown]
